FAERS Safety Report 5986074-5 (Version None)
Quarter: 2008Q4

REPORT INFORMATION
  Report Type: 
  Country: None (occurrence: None)
  Receive Date: 20081205
  Receipt Date: 20081205
  Transmission Date: 20090506
  Serious: Yes (Life-Threatening)
  Sender: FDA-Public Use
  Company Number: None

PATIENT
  Age: 82 Year
  Sex: Female

DRUGS (1)
  1. RITUXAN 580 MG [Suspect]
     Indication: SARCOMA
     Dosage: IV DRIP
     Route: 041
     Dates: start: 20080509, end: 20080509

REACTIONS (7)
  - BLOOD PRESSURE DECREASED [None]
  - DRUG INTOLERANCE [None]
  - INFUSION RELATED REACTION [None]
  - NAUSEA [None]
  - PRURITUS [None]
  - RASH [None]
  - VOMITING [None]
